FAERS Safety Report 25245309 (Version 2)
Quarter: 2025Q2

REPORT INFORMATION
  Report Type: Spontaneous
  Country: SA (occurrence: SA)
  Receive Date: 20250428
  Receipt Date: 20250623
  Transmission Date: 20250716
  Serious: Yes (Hospitalization)
  Sender: PFIZER
  Company Number: SA-PFIZER INC-202500088038

PATIENT
  Sex: Female

DRUGS (1)
  1. NGENLA [Suspect]
     Active Substance: SOMATROGON-GHLA
     Dosage: 0.66 MG/KG, WEEKLY
     Dates: start: 20250415, end: 20250422

REACTIONS (1)
  - Anaphylactic reaction [Recovered/Resolved]
